FAERS Safety Report 25201080 (Version 1)
Quarter: 2025Q2

REPORT INFORMATION
  Report Type: Spontaneous
  Country: DE (occurrence: DE)
  Receive Date: 20250416
  Receipt Date: 20250416
  Transmission Date: 20250717
  Serious: Yes (Hospitalization)
  Sender: Haleon PLC
  Company Number: DE-HALEON-2237635

PATIENT
  Age: 10 Year
  Sex: Female

DRUGS (5)
  1. IBUPROFEN [Suspect]
     Active Substance: IBUPROFEN
     Indication: Migraine
  2. IBUPROFEN [Suspect]
     Active Substance: IBUPROFEN
     Indication: Headache
  3. ACETAMINOPHEN\ASPIRIN [Suspect]
     Active Substance: ACETAMINOPHEN\ASPIRIN
     Indication: Migraine
  4. FLUTICASONE [Concomitant]
     Active Substance: FLUTICASONE
     Indication: Product used for unknown indication
     Route: 055
  5. FORMOTEROL [Concomitant]
     Active Substance: FORMOTEROL
     Indication: Product used for unknown indication

REACTIONS (8)
  - NSAID exacerbated respiratory disease [Unknown]
  - Asthma [Recovering/Resolving]
  - Nasal obstruction [Recovering/Resolving]
  - Dyspnoea [Recovering/Resolving]
  - Productive cough [Unknown]
  - Sinusitis [Unknown]
  - Nasal polyps [Recovered/Resolved]
  - Hyposmia [Recovered/Resolved]
